FAERS Safety Report 7620168-3 (Version None)
Quarter: 2011Q3

REPORT INFORMATION
  Report Type: 
  Country: None (occurrence: None)
  Receive Date: 20110719
  Receipt Date: 20110713
  Transmission Date: 20111222
  Serious: No
  Sender: FDA-Public Use
  Company Number: US-JNJFOC-20110705868

PATIENT
  Age: 20 Year
  Sex: Male

DRUGS (4)
  1. INVEGA [Suspect]
     Indication: PRODUCT USED FOR UNKNOWN INDICATION
     Route: 048
  2. INVEGA [Suspect]
     Route: 048
  3. INVEGA [Suspect]
     Route: 048
  4. INVEGA [Suspect]
     Route: 048
     Dates: start: 20090301

REACTIONS (1)
  - TORTICOLLIS [None]
